FAERS Safety Report 4606974-8 (Version None)
Quarter: 2005Q1

REPORT INFORMATION
  Report Type: 
  Country: None (occurrence: None)
  Receive Date: 20050309
  Receipt Date: 20050225
  Transmission Date: 20050727
  Serious: Yes (Hospitalization, Other)
  Sender: FDA-Public Use
  Company Number: 2005023124

PATIENT
  Age: 58 Year
  Sex: Male
  Weight: 63.5036 kg

DRUGS (4)
  1. LIPITOR [Suspect]
     Indication: BLOOD CHOLESTEROL INCREASED
     Dosage: 10 MG (10 MG, 1 IN 1 D), ORAL
     Route: 048
     Dates: start: 20041111, end: 20041216
  2. LIPITOR [Suspect]
     Indication: HYPERLIPIDAEMIA
     Dosage: 10 MG (10 MG, 1 IN 1 D), ORAL
     Route: 048
     Dates: start: 20041111, end: 20041216
  3. LORATADINE [Concomitant]
  4. CHONDROITIN/GLUCOSAMINE (CHONDROITIN, CLUCOSAMINE) [Concomitant]

REACTIONS (4)
  - AMNESIA [None]
  - BLOOD PRESSURE DECREASED [None]
  - CHILLS [None]
  - LOSS OF CONSCIOUSNESS [None]
